FAERS Safety Report 5853249-5 (Version None)
Quarter: 2008Q3

REPORT INFORMATION
  Report Type: 
  Country: None (occurrence: None)
  Receive Date: 20080820
  Receipt Date: 20080807
  Transmission Date: 20090109
  Serious: Yes (Death)
  Sender: FDA-Public Use
  Company Number: OSCN-PR-0808S-0485

PATIENT
  Sex: Male

DRUGS (1)
  1. OMNISCAN [Suspect]
     Indication: DRUG USE FOR UNKNOWN INDICATION
     Dosage: SINGLE DOSE, IV
     Route: 042
     Dates: start: 20051118, end: 20051118

REACTIONS (1)
  - NEPHROGENIC SYSTEMIC FIBROSIS [None]
